FAERS Safety Report 5261697-X (Version None)
Quarter: 2007Q1

REPORT INFORMATION
  Report Type: 
  Country: None (occurrence: None)
  Receive Date: 20070308
  Receipt Date: 20070227
  Transmission Date: 20070707
  Serious: Yes (Death, Hospitalization)
  Sender: FDA-Public Use
  Company Number: FABR-11904

PATIENT
  Age: 38 Year
  Sex: Male
  Weight: 88 kg

DRUGS (1)
  1. FABRAZYME [Suspect]
     Indication: FABRY'S DISEASE
     Dosage: 50 MG Q2WKS IV
     Route: 042
     Dates: start: 20031103, end: 20070101

REACTIONS (1)
  - INTRACRANIAL ANEURYSM [None]
